FAERS Safety Report 8622170 (Version 2)
Quarter: 2014Q1

REPORT INFORMATION
  Report Type: Spontaneous
  Country: US (occurrence: None)
  Receive Date: 20120323
  Receipt Date: 20130305
  Transmission Date: 20141002
  Serious: Yes (Hospitalization)
  Sender: FDA-Public Use
  Company Number: 163-21880-11120711

PATIENT
  Age: 76 Year
  Sex: Male
  Weight: 102.06 kg

DRUGS (13)
  1. REVLIMID [Suspect]
     Indication: PLASMA CELL MYELOMA
     Dosage: 10 MG, QD X 28D, PO?10/10/2011 - PERMANENTLY DISCONTINUED
     Route: 048
     Dates: start: 20111019
  2. AZILECT [Concomitant]
  3. BABY ASPIRIN (ACETYLSALICYCLIC ACID) [Concomitant]
  4. COLACE [Concomitant]
  5. EMEND [Concomitant]
  6. PANTOPRAZOLE [Concomitant]
  7. SIMVASTATIN [Concomitant]
  8. VELCADE (BORTEZOMIB) [Concomitant]
  9. DECADRON (DEXAMETHASONE) [Concomitant]
  10. MILK OF MAGNESIA (MAGNESSIUM HYDROXIDE) [Concomitant]
  11. NAMENDA (MEMANTINE HYDROCHLORIDE) [Concomitant]
  12. TOPROLOL XL (METOPROLOL SUCCINATE) [Concomitant]
  13. ZITHROMAX (AZITHROMYCIN) [Concomitant]

REACTIONS (3)
  - Dizziness [None]
  - Dehydration [None]
  - Fall [None]
